FAERS Safety Report 7803883-8 (Version None)
Quarter: 2011Q4

REPORT INFORMATION
  Report Type: 
  Country: None (occurrence: None)
  Receive Date: 20111010
  Receipt Date: 20111004
  Transmission Date: 20120403
  Serious: Yes (Death)
  Sender: FDA-Public Use
  Company Number: US-PFIZER INC-2010134512

PATIENT
  Sex: Male

DRUGS (5)
  1. COMBIVENT [Concomitant]
  2. SUTENT [Suspect]
     Indication: RENAL CANCER METASTATIC
     Dosage: 50 MG, 1X/DAY, 4 WEEKS ON AND 2 WEEKS OFF
     Route: 048
     Dates: start: 20100712
  3. MILK OF MAGNESIA TAB [Concomitant]
  4. IRON [Concomitant]
  5. DULCOLAX [Concomitant]

REACTIONS (1)
  - DEATH [None]
